FAERS Safety Report 24142182 (Version 1)
Quarter: 2024Q3

REPORT INFORMATION
  Report Type: Spontaneous
  Country: US (occurrence: None)
  Receive Date: 20240725
  Receipt Date: 20240725
  Transmission Date: 20241017
  Serious: Yes (Hospitalization)
  Sender: Public
  Company Number: None

PATIENT
  Sex: Male

DRUGS (1)
  1. RINVOQ [Suspect]
     Active Substance: UPADACITINIB
     Dosage: FREQUENCY : DAILY;?
     Route: 048
     Dates: start: 202403, end: 202405

REACTIONS (5)
  - Therapy cessation [None]
  - Drug ineffective [None]
  - Arthralgia [None]
  - Gastroenteritis viral [None]
  - Immobile [None]
